FAERS Safety Report 12841099 (Version 1)
Quarter: 2016Q4

REPORT INFORMATION
  Report Type: Spontaneous
  Country: US (occurrence: US)
  Receive Date: 20161012
  Receipt Date: 20161012
  Transmission Date: 20170207
  Serious: No
  Sender: FDA-Public Use
  Company Number: US-NOVOPROD-511698

PATIENT
  Age: 53 Year
  Sex: Female

DRUGS (2)
  1. SAXENDA [Suspect]
     Active Substance: LIRAGLUTIDE
     Indication: OVERWEIGHT
     Dosage: 3.0 MG, QD
     Route: 058
     Dates: start: 20160801
  2. SAXENDA [Suspect]
     Active Substance: LIRAGLUTIDE
     Indication: BLOOD PRESSURE INCREASED

REACTIONS (2)
  - Hunger [Not Recovered/Not Resolved]
  - Drug ineffective [Not Recovered/Not Resolved]

NARRATIVE: CASE EVENT DATE: 20160905
